FAERS Safety Report 5785329-7 (Version None)
Quarter: 2008Q2

REPORT INFORMATION
  Report Type: 
  Country: None (occurrence: None)
  Receive Date: 20080620
  Receipt Date: 20080620
  Transmission Date: 20081010
  Serious: No
  Sender: FDA-Public Use
  Company Number: None

PATIENT
  Sex: Male

DRUGS (1)
  1. GEODON [Suspect]
     Dosage: 60 BID PO
     Route: 048
     Dates: start: 20080502, end: 20080617

REACTIONS (1)
  - BLOOD MAGNESIUM DECREASED [None]
